FAERS Safety Report 5454385-8 (Version None)
Quarter: 2007Q3

REPORT INFORMATION
  Report Type: 
  Country: None (occurrence: None)
  Receive Date: 20070917
  Receipt Date: 20060919
  Transmission Date: 20080115
  Serious: Yes (Other)
  Sender: FDA-Public Use
  Company Number: US-ASTRAZENECA-2006UW15166

PATIENT
  Age: 12 Year
  Sex: Female

DRUGS (4)
  1. SEROQUEL [Suspect]
     Indication: BIPOLAR DISORDER
     Dosage: 1100 (600 MG AND 500 MG) TO 1200 MG
     Route: 048
     Dates: start: 20060501
  2. SEROQUEL [Suspect]
     Route: 048
  3. LITHIUM CARBONATE [Suspect]
     Route: 048
  4. ADDERALL [Concomitant]

REACTIONS (1)
  - ELECTROCARDIOGRAM QT PROLONGED [None]
